FAERS Safety Report 4470493-2 (Version None)
Quarter: 2004Q4

REPORT INFORMATION
  Report Type: 
  Country: None (occurrence: None)
  Receive Date: 20041005
  Receipt Date: 20040927
  Transmission Date: 20050328
  Serious: Yes (Hospitalization)
  Sender: FDA-Public Use
  Company Number: KII-2004-0013464

PATIENT
  Age: 34 Year
  Sex: Female

DRUGS (2)
  1. MORPHINE SULFATE [Suspect]
     Indication: PAIN
     Dosage: ORAL
     Route: 048
  2. ANTIPSYCHOTICS () [Suspect]
     Dosage: SEE TEXT, ORAL
     Route: 048

REACTIONS (6)
  - CONFUSIONAL STATE [None]
  - ELECTROCARDIOGRAM QRS COMPLEX PROLONGED [None]
  - ELECTROCARDIOGRAM QT CORRECTED INTERVAL PROLONGED [None]
  - MIGRAINE [None]
  - MULTIPLE DRUG OVERDOSE [None]
  - TACHYCARDIA [None]
